FAERS Safety Report 14555945 (Version 1)
Quarter: 2018Q1

REPORT INFORMATION
  Report Type: Spontaneous
  Country: US (occurrence: US)
  Receive Date: 20180221
  Receipt Date: 20180221
  Transmission Date: 20180509
  Serious: No
  Sender: FDA-Public Use
  Company Number: PHEH2018US006407

PATIENT
  Age: 70 Year
  Sex: Female
  Weight: 83.46 kg

DRUGS (1)
  1. ENTRESTO [Suspect]
     Active Substance: SACUBITRIL\VALSARTAN
     Indication: CARDIAC FAILURE
     Dosage: 50 MG, BID
     Route: 048
     Dates: start: 20171214, end: 20180214

REACTIONS (1)
  - Brain natriuretic peptide increased [Not Recovered/Not Resolved]

NARRATIVE: CASE EVENT DATE: 20171214
